FAERS Safety Report 18134260 (Version 2)
Quarter: 2020Q3

REPORT INFORMATION
  Report Type: Report from Study
  Country: None (occurrence: US)
  Receive Date: 20200811
  Receipt Date: 20200902
  Transmission Date: 20201103
  Serious: Yes (Hospitalization, Other)
  Sender: FDA-Public Use
  Company Number: US-ABBVIE-20K-163-3466344-00

PATIENT
  Age: 57 Year
  Sex: Female

DRUGS (3)
  1. IMBRUVICA [Suspect]
     Active Substance: IBRUTINIB
     Indication: CHRONIC LYMPHOCYTIC LEUKAEMIA
     Route: 048
     Dates: start: 20200612, end: 202006
  2. VENCLEXTA [Suspect]
     Active Substance: VENETOCLAX
     Indication: PRODUCT USED FOR UNKNOWN INDICATION
     Route: 048
     Dates: start: 20200624
  3. IMBRUVICA [Suspect]
     Active Substance: IBRUTINIB
     Indication: CHRONIC LYMPHOCYTIC LEUKAEMIA
     Route: 048

REACTIONS (15)
  - Hypoaesthesia [Unknown]
  - Fatigue [Unknown]
  - Pain [Unknown]
  - Cytokine storm [Unknown]
  - White blood cell count increased [Unknown]
  - Cardiac disorder [Unknown]
  - Drug intolerance [Unknown]
  - COVID-19 [Unknown]
  - Gait disturbance [Unknown]
  - White blood cell count decreased [Unknown]
  - Headache [Unknown]
  - Pruritus [Unknown]
  - Nausea [Unknown]
  - Paraesthesia [Unknown]
  - Candida infection [Unknown]

NARRATIVE: CASE EVENT DATE: 202006
